FAERS Safety Report 8334581-2 (Version None)
Quarter: 2012Q2

REPORT INFORMATION
  Report Type: 
  Country: None (occurrence: None)
  Receive Date: 20120503
  Receipt Date: 20110412
  Transmission Date: 20120825
  Serious: No
  Sender: FDA-Public Use
  Company Number: US-TEVA-2011001778

PATIENT
  Sex: Female
  Weight: 113.5 kg

DRUGS (3)
  1. SYNTHROID [Concomitant]
     Dates: start: 20010101
  2. CYMBALTA [Concomitant]
  3. NUVIGIL [Suspect]
     Dosage: 500 MILLIGRAM;
     Route: 048
     Dates: start: 20110331, end: 20110409

REACTIONS (2)
  - SOMNOLENCE [None]
  - DRUG PRESCRIBING ERROR [None]
